FAERS Safety Report 18515954 (Version 2)
Quarter: 2020Q4

REPORT INFORMATION
  Report Type: Spontaneous
  Country: LT (occurrence: LT)
  Receive Date: 20201118
  Receipt Date: 20201214
  Transmission Date: 20210114
  Serious: Yes (Life-Threatening, Hospitalization)
  Sender: FDA-Public Use
  Company Number: LT-ACCORD-208470

PATIENT
  Age: 91 Year
  Sex: Female

DRUGS (5)
  1. LORAZEPAM. [Concomitant]
     Active Substance: LORAZEPAM
     Dosage: 2,5 MG PER DAY
     Route: 048
     Dates: start: 2018, end: 20201024
  2. RAMIPRIL. [Suspect]
     Active Substance: RAMIPRIL
     Indication: HYPERTENSION
     Dosage: 10 MG PER DAY
     Route: 048
     Dates: start: 2018, end: 20201025
  3. GLICLAZIDE [Concomitant]
     Active Substance: GLICLAZIDE
     Indication: DIABETES MELLITUS
     Dosage: 60 MG PER DAY
     Route: 048
     Dates: start: 2018, end: 20201024
  4. ISOSORBIDE. [Concomitant]
     Active Substance: ISOSORBIDE
     Indication: MYOCARDIAL ISCHAEMIA
     Dosage: 60 MG PER DAY
     Route: 048
     Dates: start: 2018
  5. METOPROLOL. [Concomitant]
     Active Substance: METOPROLOL
     Indication: HYPERTENSION
     Dosage: 47,5 MG PER DAY
     Route: 048
     Dates: start: 2018, end: 20201024

REACTIONS (6)
  - Haemoptysis [Recovered/Resolved]
  - Pharyngeal swelling [Recovered/Resolved]
  - Laryngeal oedema [Unknown]
  - Saliva altered [Recovered/Resolved]
  - Vomiting [Recovered/Resolved]
  - Choking [Recovered/Resolved]

NARRATIVE: CASE EVENT DATE: 20201025
